FAERS Safety Report 7825840-8 (Version None)
Quarter: 2011Q4

REPORT INFORMATION
  Report Type: 
  Country: None (occurrence: None)
  Receive Date: 20111019
  Receipt Date: 20111017
  Transmission Date: 20120403
  Serious: Yes (Other)
  Sender: FDA-Public Use
  Company Number: US-ROCHE-784709

PATIENT
  Sex: Male
  Weight: 84.898 kg

DRUGS (2)
  1. ACCUTANE [Suspect]
     Indication: ACNE
     Dates: start: 19970101, end: 20000101
  2. ACCUTANE [Suspect]
     Dates: start: 20010901, end: 20020501

REACTIONS (5)
  - EMOTIONAL DISTRESS [None]
  - ABDOMINAL PAIN [None]
  - RECTAL HAEMORRHAGE [None]
  - COLITIS ULCERATIVE [None]
  - COLON CANCER [None]
